FAERS Safety Report 12315005 (Version 3)
Quarter: 2017Q2

REPORT INFORMATION
  Report Type: Report from Study
  Country: US (occurrence: US)
  Receive Date: 20160428
  Receipt Date: 20170518
  Transmission Date: 20170830
  Serious: No
  Sender: FDA-Public Use
  Company Number: PHEH2016US010238

PATIENT
  Age: 31 Year
  Sex: Female

DRUGS (1)
  1. COSENTYX [Suspect]
     Active Substance: SECUKINUMAB
     Indication: PSORIASIS
     Dosage: 300 MG, QMO
     Route: 058
     Dates: start: 20151023, end: 20160610

REACTIONS (3)
  - Maternal exposure during pregnancy [Unknown]
  - Drug ineffective [Unknown]
  - Psoriasis [Unknown]

NARRATIVE: CASE EVENT DATE: 20160610
